FAERS Safety Report 8402342 (Version 2)
Quarter: 2013Q2

REPORT INFORMATION
  Report Type: Spontaneous
  Country: US (occurrence: None)
  Receive Date: 20111227
  Receipt Date: 20120426
  Transmission Date: 20140414
  Serious: No
  Sender: FDA-Public Use
  Company Number: PHEH2011US010491

PATIENT
  Age: 31 Year
  Sex: Female

DRUGS (1)
  1. GILENYA [Suspect]
     Indication: MULTIPLE SCLEROSIS
     Dosage: 0.5 MG, DAILY, ORAL
     Route: 048
     Dates: start: 20111117

REACTIONS (7)
  - FATIGUE [None]
  - ASTHENIA [None]
  - Abdominal pain [None]
  - Fatigue [None]
  - Bradycardia [None]
  - Asthenia [None]
  - Back pain [None]
